FAERS Safety Report 5775944-9 (Version None)
Quarter: 2008Q2

REPORT INFORMATION
  Report Type: 
  Country: None (occurrence: None)
  Receive Date: 20080613
  Receipt Date: 20080602
  Transmission Date: 20081010
  Serious: Yes (Hospitalization)
  Sender: FDA-Public Use
  Company Number: US023713

PATIENT
  Age: 45 Year
  Sex: Male
  Weight: 72.5755 kg

DRUGS (4)
  1. FENTANYL CITRATE [Suspect]
     Indication: PAIN IN JAW
     Dosage: 1200 UG 6 PER DAY BUCCAL
     Route: 002
     Dates: start: 20060101
  2. METHADONE HCL [Suspect]
     Dosage: 10 MG 3 TO 4 TABLETS EVERY 3 TO 4 HOURS ORAL
     Route: 048
     Dates: start: 20070501, end: 20080315
  3. ALPRAZOLAM [Concomitant]
  4. MEPERGAN [Concomitant]

REACTIONS (7)
  - DEHYDRATION [None]
  - DISCOMFORT [None]
  - DRUG WITHDRAWAL SYNDROME [None]
  - FLUID INTAKE REDUCED [None]
  - INSOMNIA [None]
  - LOSS OF CONSCIOUSNESS [None]
  - PAIN IN JAW [None]
